FAERS Safety Report 23146724 (Version 1)
Quarter: 2023Q4

REPORT INFORMATION
  Report Type: Spontaneous
  Country: MY (occurrence: MY)
  Receive Date: 20231105
  Receipt Date: 20231105
  Transmission Date: 20240110
  Serious: Yes (Hospitalization, Other)
  Sender: FDA-Public Use
  Company Number: MY-BAYER-2023A156347

PATIENT
  Age: 70 Year
  Sex: Female
  Weight: 46.1 kg

DRUGS (3)
  1. XARELTO [Suspect]
     Active Substance: RIVAROXABAN
     Indication: Product used for unknown indication
     Dosage: 15 MG
     Route: 048
     Dates: start: 202009
  2. APIXABANA [Concomitant]
  3. EDOXABAN [Concomitant]
     Active Substance: EDOXABAN

REACTIONS (9)
  - Tumour haemorrhage [Unknown]
  - Haematuria [Unknown]
  - Cerebrovascular accident [Unknown]
  - Gastritis [Unknown]
  - Gastric polyps [Unknown]
  - Inappropriate schedule of product administration [Unknown]
  - Sinus rhythm [Unknown]
  - Memory impairment [Unknown]
  - Abnormal behaviour [Unknown]

NARRATIVE: CASE EVENT DATE: 20201001
